FAERS Safety Report 12568013 (Version 1)
Quarter: 2016Q3

REPORT INFORMATION
  Report Type: Spontaneous
  Country: US (occurrence: US)
  Receive Date: 20160718
  Receipt Date: 20160718
  Transmission Date: 20161109
  Serious: No
  Sender: FDA-Public Use
  Company Number: US-ASTELLAS-2016US013973

PATIENT
  Age: 91 Year
  Sex: Male

DRUGS (1)
  1. MYRBETRIQ [Suspect]
     Active Substance: MIRABEGRON
     Indication: PRODUCT USED FOR UNKNOWN INDICATION
     Route: 065
     Dates: end: 20160411

REACTIONS (5)
  - Increased upper airway secretion [Unknown]
  - Lacrimation increased [Unknown]
  - Tremor [Unknown]
  - Productive cough [Unknown]
  - Rhinorrhoea [Unknown]
